FAERS Safety Report 5705450-9 (Version None)
Quarter: 2008Q2

REPORT INFORMATION
  Report Type: 
  Country: None (occurrence: None)
  Receive Date: 20080411
  Receipt Date: 20080404
  Transmission Date: 20081010
  Serious: Yes (Other)
  Sender: FDA-Public Use
  Company Number: URSO-2006-050

PATIENT
  Age: 61 Year
  Sex: Male

DRUGS (15)
  1. URSO 250 [Suspect]
     Indication: CHRONIC HEPATITIS
     Dosage: 300 MG, PO
     Route: 048
     Dates: start: 20060428, end: 20060623
  2. URSO 250 [Suspect]
     Indication: CHRONIC HEPATITIS
     Dosage: 300 MG, PO
     Route: 048
     Dates: start: 20060811, end: 20061006
  3. PEGINTRON (PEGINTERFERON ALFA-2B -GENETICAL RECOMBINATION) [Suspect]
     Dosage: 100MCG. 80MCG, 40MCG, 50MCG; IM
     Route: 030
     Dates: start: 20050311, end: 20050320
  4. PEGINTRON (PEGINTERFERON ALFA-2B -GENETICAL RECOMBINATION) [Suspect]
     Dosage: 100MCG. 80MCG, 40MCG, 50MCG; IM
     Route: 030
     Dates: start: 20050401, end: 20050408
  5. PEGINTRON (PEGINTERFERON ALFA-2B -GENETICAL RECOMBINATION) [Suspect]
     Dosage: 100MCG. 80MCG, 40MCG, 50MCG; IM
     Route: 030
     Dates: start: 20050422, end: 20050422
  6. PEGINTRON (PEGINTERFERON ALFA-2B -GENETICAL RECOMBINATION) [Suspect]
     Dosage: 100MCG. 80MCG, 40MCG, 50MCG; IM
     Route: 030
     Dates: start: 20050506, end: 20050902
  7. PEGINTRON (PEGINTERFERON ALFA-2B -GENETICAL RECOMBINATION) [Suspect]
     Dosage: 100MCG. 80MCG, 40MCG, 50MCG; IM
     Route: 030
     Dates: start: 20050909, end: 20051216
  8. RIBAVIRIN [Suspect]
     Dosage: 600MG, 400MG; PO
     Route: 048
     Dates: start: 20050311, end: 20050421
  9. RIBAVIRIN [Suspect]
     Dosage: 600MG, 400MG; PO
     Route: 048
     Dates: start: 20050422, end: 20051226
  10. MARZULENE-S (SODIUM AZULENE SULFONATE_L-GLUTAMINE) [Concomitant]
  11. GLYCYRON (GLYCYRRHIZIC ACID, DL-METHIONINE COMBINED DRUG) [Concomitant]
  12. SELBEX (TEPRENONE) [Concomitant]
  13. PURSENNID (SENNOSIDE) [Concomitant]
  14. STRONGER NEO MINOPHAGEN C (GLYCYRRHIZIN, GLYCINE, CYSTEINE COMBINED DR [Concomitant]
  15. LEVOTHYROXINE SODIUM [Concomitant]

REACTIONS (5)
  - ALANINE AMINOTRANSFERASE INCREASED [None]
  - CELL MARKER INCREASED [None]
  - CONDITION AGGRAVATED [None]
  - INTERSTITIAL LUNG DISEASE [None]
  - RALES [None]
